FAERS Safety Report 13499658 (Version 1)
Quarter: 2017Q2

REPORT INFORMATION
  Report Type: Spontaneous
  Country: US (occurrence: US)
  Receive Date: 20170429
  Receipt Date: 20170429
  Transmission Date: 20170830
  Serious: Yes (Hospitalization)
  Sender: FDA-Public Use
  Company Number: None

PATIENT
  Age: 62 Year
  Sex: Female

DRUGS (2)
  1. SULFAMETHIZOLE/TRIMETHOPRIM [Suspect]
     Active Substance: SULFAMETHOXAZOLE\TRIMETHOPRIM
     Indication: SOFT TISSUE INFECTION
     Route: 048
     Dates: start: 20160502, end: 20160503
  2. SULFAMETHIZOLE/TRIMETHOPRIM [Suspect]
     Active Substance: SULFAMETHOXAZOLE\TRIMETHOPRIM
     Indication: SKIN INFECTION
     Route: 048
     Dates: start: 20160502, end: 20160503

REACTIONS (10)
  - Diarrhoea [None]
  - Drug interaction [None]
  - Pyrexia [None]
  - Asthenia [None]
  - Nausea [None]
  - Vomiting [None]
  - Hyperkalaemia [None]
  - Chills [None]
  - Acute kidney injury [None]
  - Hypotension [None]

NARRATIVE: CASE EVENT DATE: 20160503
